FAERS Safety Report 18313756 (Version 1)
Quarter: 2020Q3

REPORT INFORMATION
  Report Type: Spontaneous
  Country: US (occurrence: US)
  Receive Date: 20200925
  Receipt Date: 20200925
  Transmission Date: 20201103
  Serious: Yes (Other)
  Sender: FDA-Public Use
  Company Number: US-JNJFOC-20200933725

PATIENT
  Age: 52 Year
  Sex: Female
  Weight: 133.02 kg

DRUGS (2)
  1. INVOKANA [Suspect]
     Active Substance: CANAGLIFLOZIN
     Indication: TYPE 2 DIABETES MELLITUS
     Dosage: 100 MG AND 300 MG
     Route: 048
     Dates: end: 201711
  2. INVOKANA [Suspect]
     Active Substance: CANAGLIFLOZIN
     Route: 048

REACTIONS (4)
  - Osteomyelitis [Unknown]
  - Toe amputation [Unknown]
  - Diabetic foot infection [Unknown]
  - Renal impairment [Unknown]

NARRATIVE: CASE EVENT DATE: 2017
